FAERS Safety Report 7577950-0 (Version None)
Quarter: 2011Q2

REPORT INFORMATION
  Report Type: 
  Country: None (occurrence: None)
  Receive Date: 20110628
  Receipt Date: 20110617
  Transmission Date: 20111010
  Serious: Yes (Hospitalization)
  Sender: FDA-Public Use
  Company Number: CO-ROCHE-783719

PATIENT
  Sex: Male

DRUGS (2)
  1. PREDNISOLONE [Concomitant]
     Indication: ANTIINFLAMMATORY THERAPY
     Route: 048
  2. MIRCERA [Suspect]
     Route: 058
     Dates: start: 20081213

REACTIONS (1)
  - UROSEPSIS [None]
